FAERS Safety Report 8810006 (Version 1)
Quarter: 2012Q4

REPORT INFORMATION
  Report Type: 
  Country: GB (occurrence: GB)
  Receive Date: 20120926
  Receipt Date: 20120926
  Transmission Date: 20130627
  Serious: Yes (Hospitalization, Other)
  Sender: FDA-Public Use
  Company Number: GB-BAYER-2012-096713

PATIENT
  Age: 39 Year
  Sex: Female

DRUGS (1)
  1. MIRENA [Suspect]
     Indication: CONTRACEPTION
     Dosage: UNK, CONT
     Route: 015
     Dates: start: 2006, end: 2011

REACTIONS (16)
  - Menstruation irregular [Recovered/Resolved]
  - Appendicectomy [Recovered/Resolved]
  - Pelvic inflammatory disease [Recovered/Resolved]
  - Abdominal pain [Recovered/Resolved]
  - Vomiting [Recovered/Resolved]
  - Groin pain [Recovered/Resolved]
  - Dysuria [Recovered/Resolved]
  - Nausea [Recovered/Resolved]
  - Pyrexia [Recovered/Resolved]
  - Hydroureter [Recovered/Resolved]
  - Hydronephrosis [Recovered/Resolved]
  - Tubo-ovarian abscess [Recovered/Resolved]
  - Abdominal adhesions [Recovered/Resolved]
  - Salpingitis [None]
  - Sepsis [Recovered/Resolved]
  - Postoperative ileus [Recovered/Resolved]
